FAERS Safety Report 6062308-6 (Version None)
Quarter: 2009Q1

REPORT INFORMATION
  Report Type: 
  Country: None (occurrence: None)
  Receive Date: 20090203
  Receipt Date: 20090121
  Transmission Date: 20090719
  Serious: Yes (Death)
  Sender: FDA-Public Use
  Company Number: US-JNJFOC-20090105849

PATIENT
  Sex: Male
  Weight: 87.09 kg

DRUGS (2)
  1. FENTANYL-75 [Suspect]
     Indication: DRUG USE FOR UNKNOWN INDICATION
  2. MORPHINE [Concomitant]

REACTIONS (5)
  - BACTERIAL SEPSIS [None]
  - DISSEMINATED INTRAVASCULAR COAGULATION [None]
  - DRUG LEVEL INCREASED [None]
  - ENDOCARDITIS BACTERIAL [None]
  - HAEMORRHAGE INTRACRANIAL [None]
